FAERS Safety Report 24526154 (Version 1)
Quarter: 2024Q4

REPORT INFORMATION
  Report Type: Spontaneous
  Country: IN (occurrence: IN)
  Receive Date: 20241021
  Receipt Date: 20241021
  Transmission Date: 20250114
  Serious: Yes (Hospitalization, Disabling)
  Sender: NOVO NORDISK
  Company Number: IN-NOVOPROD-1300241

PATIENT
  Age: 46 Year
  Sex: Male

DRUGS (6)
  1. INSULIN HUMAN [Suspect]
     Active Substance: INSULIN HUMAN
     Indication: Type 2 diabetes mellitus
     Dosage: UNK
  2. METFORMINA + GLIMEPIRIDA [Concomitant]
     Indication: Type 2 diabetes mellitus
     Dosage: BID
  3. ISOPHANE INSULIN [Concomitant]
     Active Substance: INSULIN NOS
     Indication: Type 2 diabetes mellitus
     Dosage: UNK
  4. AMLODIPINE [Concomitant]
     Active Substance: AMLODIPINE BESYLATE
     Indication: Hypertension
     Dosage: UNK
  5. ATENOLOL [Concomitant]
     Active Substance: ATENOLOL
     Indication: Hypertension
     Dosage: UNK
  6. CEFTRIAXONE [Concomitant]
     Active Substance: CEFTRIAXONE
     Indication: Necrotising fasciitis
     Dosage: UNK

REACTIONS (4)
  - Leg amputation [Recovered/Resolved]
  - Diabetes mellitus inadequate control [Recovered/Resolved]
  - Hyperglycaemia [Recovered/Resolved]
  - Drug ineffective [Recovered/Resolved]
